FAERS Safety Report 5116227-X (Version None)
Quarter: 2006Q3

REPORT INFORMATION
  Report Type: 
  Country: None (occurrence: None)
  Receive Date: 20060927
  Receipt Date: 20060922
  Transmission Date: 20061208
  Serious: Yes (Other)
  Sender: FDA-Public Use
  Company Number: CA-GLAXOSMITHKLINE-A0621378A

PATIENT
  Age: 37 Year
  Sex: Female

DRUGS (1)
  1. MALARONE [Suspect]
     Indication: DRUG USE FOR UNKNOWN INDICATION
     Dosage: 1TAB PER DAY
     Route: 048
     Dates: start: 20060605, end: 20060609

REACTIONS (4)
  - DYSPNOEA [None]
  - MYALGIA [None]
  - PALPITATIONS [None]
  - VAGINAL HAEMORRHAGE [None]
